FAERS Safety Report 4294795-8 (Version None)
Quarter: 2004Q1

REPORT INFORMATION
  Report Type: 
  Country: None (occurrence: None)
  Receive Date: 20040216
  Receipt Date: 20021118
  Transmission Date: 20041129
  Serious: Yes (Life-Threatening, Hospitalization, Other)
  Sender: FDA-Public Use
  Company Number: US-GLAXOSMITHKLINE-A0386936A

PATIENT
  Age: 5 Year
  Sex: Male
  Weight: 18 kg

DRUGS (3)
  1. LAMICTAL [Suspect]
     Dosage: 100MG THREE TIMES PER DAY
     Route: 048
     Dates: start: 20020915, end: 20021106
  2. PHENOBARBITAL TAB [Concomitant]
  3. ZONISAMIDE [Concomitant]

REACTIONS (4)
  - EPILEPSY [None]
  - LIPASE INCREASED [None]
  - PANCREATITIS [None]
  - VOMITING [None]
